FAERS Safety Report 5376394-X (Version None)
Quarter: 2007Q2

REPORT INFORMATION
  Report Type: 
  Country: None (occurrence: None)
  Receive Date: 20070627
  Receipt Date: 20070627
  Transmission Date: 20071010
  Serious: Yes (Hospitalization)
  Sender: FDA-Public Use
  Company Number: None

PATIENT
  Sex: Male
  Weight: 14.4 kg

DRUGS (1)
  1. METHOTREXATE [Suspect]
     Dosage: 100 MG

REACTIONS (9)
  - ACTIVATED PARTIAL THROMBOPLASTIN TIME PROLONGED [None]
  - BLOOD GLUCOSE DECREASED [None]
  - BLOOD PRESSURE DIASTOLIC DECREASED [None]
  - HAEMOGLOBIN DECREASED [None]
  - HEART RATE INCREASED [None]
  - HYPOTHERMIA [None]
  - PERIPHERAL COLDNESS [None]
  - PROTHROMBIN TIME PROLONGED [None]
  - SOMNOLENCE [None]
